FAERS Safety Report 7598670-2 (Version None)
Quarter: 2011Q3

REPORT INFORMATION
  Report Type: 
  Country: None (occurrence: None)
  Receive Date: 20110711
  Receipt Date: 20110629
  Transmission Date: 20111222
  Serious: Yes (Hospitalization, Other)
  Sender: FDA-Public Use
  Company Number: US-BIOGENIDEC-2011BI023989

PATIENT
  Sex: Female

DRUGS (1)
  1. TYSABRI [Suspect]
     Indication: MULTIPLE SCLEROSIS
     Route: 042
     Dates: start: 20080411, end: 20110506

REACTIONS (5)
  - NON-HODGKIN'S LYMPHOMA STAGE IV [None]
  - LUNG DISORDER [None]
  - HAEMATOMA [None]
  - CARDIAC DISORDER [None]
  - FALL [None]
